FAERS Safety Report 5060263-9 (Version None)
Quarter: 2006Q3

REPORT INFORMATION
  Report Type: 
  Country: None (occurrence: None)
  Receive Date: 20060720
  Receipt Date: 20060707
  Transmission Date: 20061208
  Serious: Yes (Hospitalization)
  Sender: FDA-Public Use
  Company Number: 2006MP000869

PATIENT
  Age: 81 Year
  Sex: Male

DRUGS (3)
  1. AGGRASTAT [Suspect]
     Indication: MYOCARDIAL ISCHAEMIA
     Dosage: X1;IV
     Route: 042
     Dates: start: 20060618, end: 20060619
  2. ASPIRIN [Concomitant]
  3. CLOPIDOGREL BISULFATE [Concomitant]

REACTIONS (2)
  - EOSINOPHILIA [None]
  - THROMBOCYTOPENIA [None]
